FAERS Safety Report 10353194 (Version 1)
Quarter: 2014Q3

REPORT INFORMATION
  Report Type: Spontaneous
  Country: HU (occurrence: HU)
  Receive Date: 20140730
  Receipt Date: 20140730
  Transmission Date: 20150326
  Serious: Yes (Other)
  Sender: FDA-Public Use
  Company Number: PHHY2014HU093073

PATIENT
  Age: 67 Year
  Sex: Male

DRUGS (3)
  1. SANDIMMUN NEORAL [Suspect]
     Active Substance: CYCLOSPORINE
     Dosage: 200 MG, DAILY
  2. SANDIMMUN NEORAL [Suspect]
     Active Substance: CYCLOSPORINE
     Indication: MYASTHENIA GRAVIS
     Dosage: 300 MG, DAILY
     Dates: start: 201305
  3. MEDROL [Concomitant]
     Active Substance: METHYLPREDNISOLONE
     Dosage: UNK UKN, UNK
     Dates: end: 201312

REACTIONS (2)
  - Off label use [Unknown]
  - Renal impairment [Unknown]

NARRATIVE: CASE EVENT DATE: 201305
